FAERS Safety Report 6693053 (Version 1)
Quarter: 2020Q3

REPORT INFORMATION
  Report Type: Report from Study
  Country: GB (occurrence: GB)
  Receive Date: 20080708
  Receipt Date: 20080708
  Transmission Date: 20201104
  Serious: Yes (Hospitalization)
  Sender: FDA-Public Use
  Company Number: GB-ROCHE-573279

PATIENT
  Age: 78 Year
  Sex: Female

DRUGS (6)
  1. IBANDRONIC ACID. [Suspect]
     Active Substance: IBANDRONIC ACID
     Indication: OSTEOPOROSIS
     Route: 048
     Dates: start: 20061201
  2. METHOTREXATE. [Concomitant]
     Active Substance: METHOTREXATE
     Route: 048
  3. HYDROXYCHLOROQUINE [Concomitant]
     Active Substance: HYDROXYCHLOROQUINE
     Indication: OSTEOARTHRITIS
     Dosage: REPORTED AS HYDROXYCHIOROQUINE.
     Route: 048
  4. FOLIC ACID. [Concomitant]
     Active Substance: FOLIC ACID
     Dosage: 5MG EVERY TUESDAY AND THURSDAY.
     Route: 048
  5. COD LIVER OIL [Concomitant]
     Active Substance: COD LIVER OIL
     Route: 048
  6. WARFARIN SODIUM. [Concomitant]
     Active Substance: WARFARIN SODIUM
     Indication: ANTICOAGULANT THERAPY
     Dosage: VARIES ? LAST TIME IT WAS 5. INDICATED FOR A BLOOD PROBLEM.
     Route: 048

REACTIONS (3)
  - Cardiac disorder [Recovering/Resolving]
  - Dizziness [Recovering/Resolving]
  - Heart rate irregular [None]

NARRATIVE: CASE EVENT DATE: 20080620
